FAERS Safety Report 22258481 (Version 1)
Quarter: 2023Q2

REPORT INFORMATION
  Report Type: Spontaneous
  Country: US (occurrence: US)
  Receive Date: 20230427
  Receipt Date: 20230427
  Transmission Date: 20230722
  Serious: Yes (Life-Threatening, Hospitalization)
  Sender: FDA-Public Use
  Company Number: US-STRIDES ARCOLAB LIMITED-2023SP002341

PATIENT
  Age: 65 Year
  Sex: Female

DRUGS (12)
  1. FLUCYTOSINE [Suspect]
     Active Substance: FLUCYTOSINE
     Indication: Cryptococcosis
     Dosage: UNK
     Route: 065
  2. FLUCYTOSINE [Suspect]
     Active Substance: FLUCYTOSINE
     Indication: Endocarditis
  3. MICAFUNGIN [Suspect]
     Active Substance: MICAFUNGIN SODIUM
     Indication: Cryptococcosis
     Dosage: UNK
     Route: 065
  4. MICAFUNGIN [Suspect]
     Active Substance: MICAFUNGIN SODIUM
     Indication: Endocarditis
  5. AMPHOTERICIN B [Suspect]
     Active Substance: AMPHOTERICIN B
     Indication: Cryptococcosis
     Dosage: UNK
     Route: 065
  6. AMPHOTERICIN B [Suspect]
     Active Substance: AMPHOTERICIN B
     Indication: Endocarditis
  7. FLUCONAZOLE [Suspect]
     Active Substance: FLUCONAZOLE
     Indication: Cryptococcosis
     Dosage: UNK
     Route: 065
  8. FLUCONAZOLE [Suspect]
     Active Substance: FLUCONAZOLE
     Indication: Endocarditis
  9. DEXAMETHASONE [Concomitant]
     Active Substance: DEXAMETHASONE
     Indication: COVID-19
     Dosage: UNK
     Route: 065
  10. HEPARIN [Concomitant]
     Active Substance: HEPARIN SODIUM
     Indication: Embolism
     Dosage: UNK, INFUSION
     Route: 065
  11. REMDESIVIR [Concomitant]
     Active Substance: REMDESIVIR
     Indication: COVID-19
     Dosage: UNK
     Route: 065
  12. AZTREONAM [Concomitant]
     Active Substance: AZTREONAM
     Indication: COVID-19
     Dosage: UNK
     Route: 065

REACTIONS (1)
  - Drug ineffective for unapproved indication [Unknown]
